FAERS Safety Report 21770161 (Version 1)
Quarter: 2022Q4

REPORT INFORMATION
  Report Type: Spontaneous
  Country: US (occurrence: US)
  Receive Date: 20221223
  Receipt Date: 20221223
  Transmission Date: 20230113
  Serious: No
  Sender: FDA-Public Use
  Company Number: US-SA-SAC20221222000122

PATIENT
  Age: 70 Year
  Sex: Female

DRUGS (4)
  1. KEVZARA [Suspect]
     Active Substance: SARILUMAB
     Indication: Essential hypertension
     Dosage: 200 MG, QOW
     Route: 058
     Dates: start: 202211
  2. KEVZARA [Suspect]
     Active Substance: SARILUMAB
     Indication: Type IIa hyperlipidaemia
  3. KEVZARA [Suspect]
     Active Substance: SARILUMAB
     Indication: Raynaud^s phenomenon
  4. KEVZARA [Suspect]
     Active Substance: SARILUMAB
     Indication: Rheumatoid arthritis

REACTIONS (3)
  - Arthralgia [Unknown]
  - Movement disorder [Unknown]
  - Product use in unapproved indication [Unknown]
